FAERS Safety Report 18440826 (Version 1)
Quarter: 2020Q4

REPORT INFORMATION
  Report Type: Report from Study
  Country: US (occurrence: US)
  Receive Date: 20201029
  Receipt Date: 20201029
  Transmission Date: 20210114
  Serious: Yes (Hospitalization)
  Sender: FDA-Public Use
  Company Number: US-BAYER-2020-231957

PATIENT
  Age: 36 Year
  Sex: Female

DRUGS (1)
  1. ASPIRIN. [Suspect]
     Active Substance: ASPIRIN
     Indication: KAWASAKI^S DISEASE

REACTIONS (4)
  - Product use in unapproved indication [None]
  - Anaemia [None]
  - Vaginal haemorrhage [None]
  - Off label use [None]
